FAERS Safety Report 7907716-0 (Version None)
Quarter: 2011Q4

REPORT INFORMATION
  Report Type: 
  Country: None (occurrence: None)
  Receive Date: 20111110
  Receipt Date: 20111028
  Transmission Date: 20120403
  Serious: Yes (Hospitalization, Other)
  Sender: FDA-Public Use
  Company Number: ES-ELI_LILLY_AND_COMPANY-ES201110007956

PATIENT
  Age: 47 Year
  Sex: Male

DRUGS (7)
  1. ALPRAZOLAM [Concomitant]
     Indication: DEPRESSION
     Dosage: UNK
  2. DOXAZOSIN MESYLATE [Concomitant]
     Indication: HYPERTENSION
  3. BISOPROLOL [Concomitant]
     Indication: HYPERTENSION
  4. PROZAC [Suspect]
     Indication: DEPRESSION
     Dosage: UNK
     Dates: start: 20090101
  5. HYDROCHLOROTHIAZID [Concomitant]
     Indication: HYPERTENSION
  6. IRBESARTAN [Concomitant]
     Indication: HYPERTENSION
  7. PENTOXIFILINA [Concomitant]

REACTIONS (7)
  - SEROTONIN SYNDROME [None]
  - DELIRIUM [None]
  - INTENTIONAL OVERDOSE [None]
  - SUICIDE ATTEMPT [None]
  - ASPARTATE AMINOTRANSFERASE INCREASED [None]
  - ALANINE AMINOTRANSFERASE INCREASED [None]
  - DRUG INTERACTION [None]
